FAERS Safety Report 8759155 (Version 1)
Quarter: 2012Q4

REPORT INFORMATION
  Report Type: 
  Country: ES (occurrence: ES)
  Receive Date: 20120829
  Receipt Date: 20120829
  Transmission Date: 20130627
  Serious: Yes (Other)
  Sender: FDA-Public Use
  Company Number: ES-TEVA-354968ISR

PATIENT
  Age: 62 Year
  Sex: Female

DRUGS (7)
  1. DOXORUBICIN [Suspect]
     Indication: BREAST CANCER
     Dosage: (4 cycles)
     Route: 065
  2. LIPOSOMAL DOXORUBICIN [Suspect]
     Indication: BREAST CANCER
  3. ANASTROZOLE [Suspect]
     Indication: BREAST CANCER
     Dosage: 1 Milligram Daily; 1 mg/day
     Route: 065
  4. CYCLOPHOSPHAMIDE [Suspect]
     Indication: BREAST CANCER
     Dosage: 28.5714 mg/m2 Daily; (4 cycles)
     Route: 065
  5. DEXAMETHASONE [Concomitant]
     Dosage: 16 mg/day for 3d
     Route: 065
  6. OMEPRAZOLE [Concomitant]
     Route: 065
  7. CHLORHEXIDINE [Concomitant]
     Route: 048

REACTIONS (4)
  - Osteonecrosis [Recovered/Resolved]
  - Staphylococcus test positive [None]
  - Sinusitis [None]
  - Oroantral fistula [None]
